FAERS Safety Report 6398621-2 (Version None)
Quarter: 2009Q4

REPORT INFORMATION
  Report Type: 
  Country: None (occurrence: None)
  Receive Date: 20091007
  Receipt Date: 20090925
  Transmission Date: 20100525
  Serious: Yes (Hospitalization)
  Sender: FDA-Public Use
  Company Number: 2009SP011629

PATIENT
  Age: 36 Year
  Sex: Female
  Weight: 58 kg

DRUGS (11)
  1. PEG-INTRON [Suspect]
     Indication: HEPATITIS C
     Dates: start: 20080910, end: 20090627
  2. PEG-INTRON [Suspect]
  3. RIBAVIRIN [Suspect]
     Indication: HEPATITIS C
     Dates: start: 20080910, end: 20090601
  4. RIBAVIRIN [Suspect]
  5. LOXOPROFEN (LOXOPROFEN) [Suspect]
     Indication: PYREXIA
     Dates: start: 20080911, end: 20090220
  6. LANSOPRAZOLE [Suspect]
     Indication: ULCER
     Dates: start: 20080919, end: 20090617
  7. ETIZOLAM (ETIZOLAM) [Suspect]
     Indication: INSOMNIA
     Dates: start: 20080916, end: 20090531
  8. DOMPERIDONE (DOMPERIDONE) [Suspect]
     Indication: NAUSEA
     Dates: start: 20081029, end: 20090110
  9. HIRUDOID SOFT (HEPARINOID) (HEPARINOID) [Suspect]
     Indication: PRURITUS
     Dates: start: 20081105, end: 20081224
  10. RESTAMIN (DIPHENHYDRAMINE) [Suspect]
     Indication: PRURITUS
     Dates: start: 20080913, end: 20090311
  11. EBASTEL [Concomitant]

REACTIONS (8)
  - CAESAREAN SECTION [None]
  - CEREBRAL VENTRICLE DILATATION [None]
  - MENINGOCELE [None]
  - PATERNAL DRUGS AFFECTING FOETUS [None]
  - PREGNANCY OF PARTNER [None]
  - THREATENED LABOUR [None]
  - TWIN PREGNANCY [None]
  - UNDERWEIGHT [None]
